FAERS Safety Report 16019763 (Version 4)
Quarter: 2019Q3

REPORT INFORMATION
  Report Type: Report from Study
  Country: CA (occurrence: CA)
  Receive Date: 20190228
  Receipt Date: 20190917
  Transmission Date: 20191004
  Serious: Yes (Hospitalization, Other)
  Sender: FDA-Public Use
  Company Number: PHHY2016CA082563

PATIENT
  Age: 88 Year
  Sex: Female

DRUGS (4)
  1. SANDOSTATIN LAR DEPOT [Suspect]
     Active Substance: OCTREOTIDE ACETATE
     Dosage: 20 MG, QMO
     Route: 030
  2. BASAGLAR [Concomitant]
     Active Substance: INSULIN GLARGINE
     Indication: PRODUCT USED FOR UNKNOWN INDICATION
     Dosage: 50 U, AT BED TIME
     Route: 065
  3. SANDOSTATIN LAR DEPOT [Suspect]
     Active Substance: OCTREOTIDE ACETATE
     Dosage: UNK
     Route: 030
     Dates: start: 20171124
  4. SANDOSTATIN LAR DEPOT [Suspect]
     Active Substance: OCTREOTIDE ACETATE
     Indication: CARCINOID TUMOUR
     Dosage: 20 MG, QMO
     Route: 030
     Dates: start: 20160513

REACTIONS (19)
  - Dementia Alzheimer^s type [Unknown]
  - Pulmonary mass [Unknown]
  - Blood pressure systolic increased [Unknown]
  - Body temperature decreased [Unknown]
  - Weight decreased [Unknown]
  - Blood glucose decreased [Unknown]
  - Blood glucose abnormal [Unknown]
  - Nausea [Unknown]
  - Back pain [Unknown]
  - Flatulence [Unknown]
  - Asthenia [Unknown]
  - Constipation [Unknown]
  - Vomiting [Unknown]
  - Organising pneumonia [Unknown]
  - Memory impairment [Unknown]
  - Weight increased [Unknown]
  - Intestinal obstruction [Unknown]
  - Tremor [Unknown]
  - Blood pressure increased [Unknown]

NARRATIVE: CASE EVENT DATE: 2016
